FAERS Safety Report 7358734-5 (Version None)
Quarter: 2011Q1

REPORT INFORMATION
  Report Type: 
  Country: None (occurrence: None)
  Receive Date: 20110317
  Receipt Date: 20110310
  Transmission Date: 20110831
  Serious: Yes (Hospitalization)
  Sender: FDA-Public Use
  Company Number: A0892666A

PATIENT
  Age: 58 Year
  Sex: Male
  Weight: 128.2 kg

DRUGS (7)
  1. AVANDIA [Suspect]
     Indication: DIABETES MELLITUS
     Dosage: 4MG TWICE PER DAY
     Route: 048
     Dates: start: 20000411
  2. ATENOLOL [Concomitant]
  3. VIOXX [Concomitant]
  4. ASPIRIN [Concomitant]
  5. PRINIVIL [Concomitant]
  6. LIPITOR [Concomitant]
  7. GLUCOTROL XL [Concomitant]

REACTIONS (10)
  - QUALITY OF LIFE DECREASED [None]
  - CARDIAC FAILURE CONGESTIVE [None]
  - ANXIETY [None]
  - MITRAL VALVE INCOMPETENCE [None]
  - MYOCARDIAL INFARCTION [None]
  - CEREBROVASCULAR ACCIDENT [None]
  - ARTERIOSCLEROSIS [None]
  - ANHEDONIA [None]
  - GAIT DISTURBANCE [None]
  - PULMONARY HYPERTENSION [None]
